FAERS Safety Report 15221210 (Version 1)
Quarter: 2018Q3

REPORT INFORMATION
  Report Type: Spontaneous
  Country: US (occurrence: US)
  Receive Date: 20180731
  Receipt Date: 20180731
  Transmission Date: 20181010
  Serious: No
  Sender: FDA-Public Use
  Company Number: US-SA-2018SA205950

PATIENT
  Sex: Female

DRUGS (15)
  1. TIZANIDINE. [Concomitant]
     Active Substance: TIZANIDINE
  2. BIOTIN [Concomitant]
     Active Substance: BIOTIN
  3. CITALOPRAM [Concomitant]
     Active Substance: CITALOPRAM HYDROBROMIDE
  4. AUBAGIO [Suspect]
     Active Substance: TERIFLUNOMIDE
     Dosage: 14 MG, QD
     Route: 048
  5. RANITIDINE. [Concomitant]
     Active Substance: RANITIDINE
  6. CALCIUM [Concomitant]
     Active Substance: CALCIUM
  7. GABAPENTIN. [Concomitant]
     Active Substance: GABAPENTIN
  8. MAGNESIUM CITRATE. [Concomitant]
     Active Substance: MAGNESIUM CITRATE
  9. VITAMIN B12 [Concomitant]
     Active Substance: CYANOCOBALAMIN
  10. TOPIRAMATE. [Concomitant]
     Active Substance: TOPIRAMATE
  11. FUSION PLUS [Concomitant]
     Active Substance: IRON\VITAMIN B
  12. MAGNESIUM [Concomitant]
     Active Substance: MAGNESIUM
  13. CALCIUM CITRATE [Concomitant]
     Active Substance: CALCIUM CITRATE
  14. MULTIVITAMINS [ASCORBIC ACID;ERGOCALCIFEROL;FOLIC ACID;NICOTINAMIDE;PA [Concomitant]
  15. CIMETIDINE [Concomitant]
     Active Substance: CIMETIDINE

REACTIONS (4)
  - Cognitive disorder [Not Recovered/Not Resolved]
  - Gait disturbance [Not Recovered/Not Resolved]
  - Malaise [Not Recovered/Not Resolved]
  - Infection [Not Recovered/Not Resolved]
